FAERS Safety Report 10213974 (Version 1)
Quarter: 2014Q2

REPORT INFORMATION
  Report Type: Spontaneous
  Country: JP (occurrence: JP)
  Receive Date: 20140603
  Receipt Date: 20140603
  Transmission Date: 20141212
  Serious: Yes (Other)
  Sender: FDA-Public Use
  Company Number: JP-MYLANLABS-2014S1012339

PATIENT
  Age: 11 Year
  Sex: Male

DRUGS (3)
  1. CARBOPLATIN [Suspect]
     Indication: HEPATOCELLULAR CARCINOMA
     Route: 041
  2. CISPLATIN [Suspect]
     Indication: HEPATOCELLULAR CARCINOMA
     Route: 041
  3. DOXORUBICIN [Suspect]
     Indication: HEPATOCELLULAR CARCINOMA
     Route: 041

REACTIONS (2)
  - Pancytopenia [Unknown]
  - Bone marrow failure [Unknown]
